FAERS Safety Report 8136999-X (Version None)
Quarter: 2012Q1

REPORT INFORMATION
  Report Type: 
  Country: None (occurrence: None)
  Receive Date: 20120215
  Receipt Date: 20120207
  Transmission Date: 20120608
  Serious: Yes (Hospitalization)
  Sender: FDA-Public Use
  Company Number: US-BIOGENIDEC-2010BI043472

PATIENT
  Age: 54 Year
  Sex: Female
  Weight: 79 kg

DRUGS (4)
  1. TYSABRI [Suspect]
     Indication: MULTIPLE SCLEROSIS
     Route: 042
     Dates: start: 20070821, end: 20111125
  2. AVONEX [Concomitant]
     Indication: MULTIPLE SCLEROSIS
     Route: 030
     Dates: start: 19970101, end: 19980101
  3. AVONEX [Concomitant]
     Route: 030
     Dates: start: 20030101
  4. AVONEX [Concomitant]
     Route: 030
     Dates: start: 19990802, end: 20070101

REACTIONS (7)
  - ESCHERICHIA SEPSIS [None]
  - PYREXIA [None]
  - BLOOD POTASSIUM DECREASED [None]
  - SKIN INFECTION [None]
  - STAPHYLOCOCCAL INFECTION [None]
  - DECREASED IMMUNE RESPONSIVENESS [None]
  - MULTIPLE SCLEROSIS [None]
